FAERS Safety Report 8050375-X (Version None)
Quarter: 2012Q1

REPORT INFORMATION
  Report Type: 
  Country: None (occurrence: None)
  Receive Date: 20120111
  Receipt Date: 20110624
  Transmission Date: 20120608
  Serious: Yes (Other)
  Sender: FDA-Public Use
  Company Number: 2011-03808

PATIENT
  Age: 15 Year
  Sex: Female

DRUGS (2)
  1. TUBERSOL 5 TU (TUBERCULIN PPD (M) 5 TU),SANOFI PASTEUR LTD.,C3059A [Suspect]
     Indication: TUBERCULIN TEST
     Dosage: I.D.,FOREARM L
     Dates: start: 20090626, end: 20090626
  2. VARICELLA [Suspect]
     Indication: IMMUNISATION
     Dates: start: 20090626, end: 20090626

REACTIONS (9)
  - BRADYCARDIA [None]
  - DIZZINESS [None]
  - PALLOR [None]
  - NAUSEA [None]
  - MALAISE [None]
  - TONIC CONVULSION [None]
  - HYPERHIDROSIS [None]
  - PRESYNCOPE [None]
  - DEHYDRATION [None]
